FAERS Safety Report 6507195-4 (Version None)
Quarter: 2009Q4

REPORT INFORMATION
  Report Type: 
  Country: None (occurrence: None)
  Receive Date: 20091216
  Receipt Date: 20091209
  Transmission Date: 20100525
  Serious: Yes (Other)
  Sender: FDA-Public Use
  Company Number: 2009SP027814

PATIENT
  Age: 52 Year
  Sex: Female

DRUGS (3)
  1. REBETOL [Suspect]
     Indication: HEPATITIS C
     Dosage: 800 MG; QD; PO; 200MG;QD;PO
     Dates: start: 20090101, end: 20090101
  2. REBETOL [Suspect]
     Indication: HEPATITIS C
     Dosage: 800 MG; QD; PO; 200MG;QD;PO
     Dates: start: 20090710, end: 20090901
  3. PEG-INTRON [Suspect]
     Indication: HEPATITIS C
     Dosage: 80 MCG;QW; SC
     Route: 058
     Dates: start: 20090710

REACTIONS (6)
  - CONFUSIONAL STATE [None]
  - DEPRESSION [None]
  - MALAISE [None]
  - OROPHARYNGEAL BLISTERING [None]
  - OROPHARYNGEAL PAIN [None]
  - PHARYNGEAL OEDEMA [None]
